FAERS Safety Report 11402318 (Version 9)
Quarter: 2020Q2

REPORT INFORMATION
  Report Type: Report from Study
  Country: US (occurrence: US)
  Receive Date: 20150821
  Receipt Date: 20200522
  Transmission Date: 20200713
  Serious: Yes (Other)
  Sender: FDA-Public Use
  Company Number: PHHY2015US099189

PATIENT
  Age: 57 Year
  Sex: Female

DRUGS (8)
  1. LYRICA [Concomitant]
     Active Substance: PREGABALIN
     Indication: PRODUCT USED FOR UNKNOWN INDICATION
     Dosage: 150 MG, BID
     Route: 065
  2. ARMOUR THYROID [Concomitant]
     Active Substance: THYROID, PORCINE
     Indication: PRODUCT USED FOR UNKNOWN INDICATION
     Dosage: 1 DF, QD
     Route: 065
  3. SEROQUEL [Concomitant]
     Active Substance: QUETIAPINE FUMARATE
     Indication: PRODUCT USED FOR UNKNOWN INDICATION
     Dosage: 1 DF, BID
     Route: 065
  4. TEGRETAL - SLOW RELEASE [Concomitant]
     Indication: NEURALGIA
     Dosage: UNK
     Route: 065
     Dates: start: 20160120
  5. LATISSE [Concomitant]
     Active Substance: BIMATOPROST
     Indication: PRODUCT USED FOR UNKNOWN INDICATION
     Dosage: 1 APP, ONCE A DAY AT BEDTIME
     Route: 065
  6. GILENYA [Suspect]
     Active Substance: FINGOLIMOD HYDROCHLORIDE
     Indication: MULTIPLE SCLEROSIS
     Dosage: UNK, QD
     Route: 048
  7. TRAMADOL - SLOW RELEASE [Concomitant]
     Indication: PRODUCT USED FOR UNKNOWN INDICATION
     Dosage: 1 DF (100 MG/24 HOURS), QD
     Route: 065
  8. ADVIL [Concomitant]
     Active Substance: IBUPROFEN
     Indication: PAIN
     Dosage: UNK
     Route: 065
     Dates: start: 20160613

REACTIONS (16)
  - Melanocytic naevus [Not Recovered/Not Resolved]
  - Fatigue [Not Recovered/Not Resolved]
  - Food craving [Recovered/Resolved]
  - Vomiting [Recovered/Resolved]
  - Headache [Recovered/Resolved]
  - Weight increased [Recovered/Resolved]
  - Seborrhoeic keratosis [Recovered/Resolved]
  - Blood cholesterol increased [Not Recovered/Not Resolved]
  - Skin lesion [Unknown]
  - Nasopharyngitis [Recovered/Resolved]
  - Keratoacanthoma [Unknown]
  - Eczema [Recovered/Resolved]
  - Actinic keratosis [Recovered/Resolved]
  - Pain in extremity [Not Recovered/Not Resolved]
  - Skin fissures [Unknown]
  - Hand dermatitis [Recovered/Resolved]

NARRATIVE: CASE EVENT DATE: 20150313
